FAERS Safety Report 25070128 (Version 1)
Quarter: 2025Q1

REPORT INFORMATION
  Report Type: Spontaneous
  Country: IT (occurrence: IT)
  Receive Date: 20250312
  Receipt Date: 20250312
  Transmission Date: 20250408
  Serious: Yes (Life-Threatening, Hospitalization, Other)
  Sender: AMGEN
  Company Number: IT-AMGEN-ITASP2025045270

PATIENT

DRUGS (1)
  1. ADALIMUMAB [Suspect]
     Active Substance: ADALIMUMAB
     Indication: Rheumatic disorder
     Route: 065

REACTIONS (3)
  - Thrombotic microangiopathy [Unknown]
  - Haemophagocytic lymphohistiocytosis [Unknown]
  - Osteonecrosis [Unknown]
